FAERS Safety Report 4660106-9 (Version None)
Quarter: 2005Q2

REPORT INFORMATION
  Report Type: 
  Country: None (occurrence: None)
  Receive Date: 20050505
  Receipt Date: 20050121
  Transmission Date: 20051028
  Serious: No
  Sender: FDA-Public Use
  Company Number: 2005USFACT00254

PATIENT
  Age: 64 Year
  Sex: Female
  Weight: 91.2 kg

DRUGS (4)
  1. FACTIVE [Suspect]
     Indication: RESPIRATORY TRACT INFECTION BACTERIAL
     Dates: start: 20050108, end: 20050113
  2. FLONASE [Concomitant]
  3. DIOVAN [Concomitant]
  4. ZOCOR [Concomitant]

REACTIONS (1)
  - RASH PAPULAR [None]
